FAERS Safety Report 7013233-5 (Version None)
Quarter: 2010Q3

REPORT INFORMATION
  Report Type: 
  Country: None (occurrence: None)
  Receive Date: 20100924
  Receipt Date: 20100916
  Transmission Date: 20110219
  Serious: Yes (Hospitalization, Other)
  Sender: FDA-Public Use
  Company Number: CA-MERCK-1009USA03706

PATIENT
  Age: 45 Year
  Sex: Male

DRUGS (9)
  1. FOSAMAX PLUS D [Suspect]
     Route: 048
  2. ACETAMINOPHEN AND CAFFEINE AND CODEINE [Concomitant]
     Route: 065
  3. CALCIUM GLUCONATE [Concomitant]
     Route: 048
  4. SULFAMETHOXAZOLE AND TRIMETHOPRIM [Concomitant]
     Route: 048
  5. PMS ASA [Concomitant]
     Route: 048
  6. FERROUS FUMARATE [Concomitant]
     Route: 048
  7. NEXIUM [Concomitant]
     Route: 048
  8. VANCOMYCIN [Concomitant]
     Route: 042
  9. VITAMIN D (UNSPECIFIED) [Concomitant]
     Route: 048

REACTIONS (10)
  - ALANINE AMINOTRANSFERASE INCREASED [None]
  - ASPARTATE AMINOTRANSFERASE INCREASED [None]
  - BLOOD ALKALINE PHOSPHATASE INCREASED [None]
  - ERYTHEMA [None]
  - LIVER FUNCTION TEST ABNORMAL [None]
  - PETECHIAE [None]
  - PRURITUS [None]
  - PYREXIA [None]
  - SWELLING FACE [None]
  - WHITE BLOOD CELL COUNT INCREASED [None]
